FAERS Safety Report 16015683 (Version 1)
Quarter: 2019Q1

REPORT INFORMATION
  Report Type: Spontaneous
  Country: US (occurrence: US)
  Receive Date: 20190228
  Receipt Date: 20190228
  Transmission Date: 20190418
  Serious: No
  Sender: FDA-Public Use
  Company Number: US-ASTRAZENECA-2019SE28174

PATIENT
  Age: 705 Month
  Sex: Female
  Weight: 43.5 kg

DRUGS (3)
  1. BUPROPION. [Suspect]
     Active Substance: BUPROPION
     Dosage: 150MG TABLETS BY MOUTH ONCE DAILY
     Route: 048
     Dates: start: 201804
  2. OMEPRAZOLE. [Suspect]
     Active Substance: OMEPRAZOLE
     Indication: NAUSEA
     Dosage: SHE TAKES ONE IN THE MORNING AND ONE AT NIGHT BY MOUTH
     Route: 048
  3. ZOLOFT [Suspect]
     Active Substance: SERTRALINE HYDROCHLORIDE
     Indication: DEPRESSION
     Dosage: 100MG TABLET BY MOUTH DAILY
     Route: 048
     Dates: start: 201512, end: 201804

REACTIONS (6)
  - Eating disorder [Unknown]
  - Nausea [Not Recovered/Not Resolved]
  - Hyperhidrosis [Not Recovered/Not Resolved]
  - Crying [Recovered/Resolved]
  - Incontinence [Unknown]
  - Dizziness [Not Recovered/Not Resolved]

NARRATIVE: CASE EVENT DATE: 201804
